FAERS Safety Report 14898319 (Version 2)
Quarter: 2018Q2

REPORT INFORMATION
  Report Type: Spontaneous
  Country: US (occurrence: US)
  Receive Date: 20180515
  Receipt Date: 20180517
  Transmission Date: 20180711
  Serious: No
  Sender: FDA-Public Use
  Company Number: US-SA-2018SA108501

PATIENT
  Sex: Female

DRUGS (7)
  1. TOUJEO [Suspect]
     Active Substance: INSULIN GLARGINE
     Dosage: DOSE:10 UNIT(S)
     Route: 051
     Dates: start: 2018, end: 2018
  2. TOUJEO [Suspect]
     Active Substance: INSULIN GLARGINE
     Dosage: DOSE:12 UNIT(S)
     Route: 051
     Dates: start: 2018, end: 2018
  3. SOLOSTAR [Suspect]
     Active Substance: DEVICE
     Dates: start: 2018, end: 2018
  4. SOLOSTAR [Suspect]
     Active Substance: DEVICE
     Dates: start: 2018
  5. TOUJEO [Suspect]
     Active Substance: INSULIN GLARGINE
     Dosage: DOSE:14 UNIT(S)
     Route: 051
     Dates: start: 2018
  6. SOLOSTAR [Suspect]
     Active Substance: DEVICE
     Dates: start: 2018, end: 2018
  7. HUMALOG [Concomitant]
     Active Substance: INSULIN LISPRO
     Route: 065

REACTIONS (4)
  - Drug dose omission [Unknown]
  - Osteoarthritis [Not Recovered/Not Resolved]
  - Blood glucose decreased [Unknown]
  - Abdominal pain upper [Unknown]

NARRATIVE: CASE EVENT DATE: 2018
